FAERS Safety Report 10768755 (Version 3)
Quarter: 2015Q2

REPORT INFORMATION
  Report Type: Report from Study
  Country: GB (occurrence: GB)
  Receive Date: 20150206
  Receipt Date: 20150514
  Transmission Date: 20150821
  Serious: Yes (Hospitalization)
  Sender: FDA-Public Use
  Company Number: GB-ROCHE-1530742

PATIENT
  Age: 50 Year
  Sex: Male
  Weight: 78.6 kg

DRUGS (4)
  1. BEVACIZUMAB [Suspect]
     Active Substance: BEVACIZUMAB
     Indication: GASTRIC CANCER
     Dosage: MOST RECENT DOSE PRIOR TO SAE :24/SEP/2013
     Route: 042
     Dates: start: 20130903
  2. CAPECITABINE. [Suspect]
     Active Substance: CAPECITABINE
     Indication: GASTRIC CANCER
     Dosage: MOST RECENT DOSE PRIOR TO SAE : 05/NOV/2013.
     Route: 048
     Dates: start: 20130903
  3. CISPLATIN. [Suspect]
     Active Substance: CISPLATIN
     Indication: GASTRIC CANCER
     Dosage: MOST RECENT DOSE PRIOR TO SAE : 15/OCT/2013.
     Route: 042
     Dates: start: 20130903
  4. EPIRUBICIN [Suspect]
     Active Substance: EPIRUBICIN
     Indication: GASTRIC CANCER
     Dosage: MOST RECENT DOSE PRIOR TO SAE : 15/OCT/2013.
     Route: 042
     Dates: start: 20130903

REACTIONS (2)
  - Gastrointestinal anastomotic leak [Recovered/Resolved]
  - Wound [Not Recovered/Not Resolved]

NARRATIVE: CASE EVENT DATE: 20131224
